FAERS Safety Report 11749257 (Version 3)
Quarter: 2016Q2

REPORT INFORMATION
  Report Type: Report from Study
  Country: US (occurrence: US)
  Receive Date: 20151118
  Receipt Date: 20160428
  Transmission Date: 20160815
  Serious: No
  Sender: FDA-Public Use
  Company Number: PHEH2015US022901

PATIENT
  Sex: Male
  Weight: 126.98 kg

DRUGS (1)
  1. COSENTYX [Suspect]
     Active Substance: SECUKINUMAB
     Indication: PSORIASIS
     Dosage: 300 MG, QW 0-5 WEEKS, THEN Q4 WEEKS THEREAFTER
     Route: 058
     Dates: start: 20150630, end: 20160324

REACTIONS (2)
  - Patient dissatisfaction with treatment [Unknown]
  - Psoriasis [Unknown]
